FAERS Safety Report 9005650 (Version 1)
Quarter: 2013Q1

REPORT INFORMATION
  Report Type: Spontaneous
  Country: US (occurrence: US)
  Receive Date: 20130109
  Receipt Date: 20130109
  Transmission Date: 20140127
  Serious: Yes (Other)
  Sender: FDA-Public Use
  Company Number: US-ABBOTT-12P-163-0937994-00

PATIENT
  Sex: Female
  Weight: 88.53 kg

DRUGS (3)
  1. VICODIN [Suspect]
     Indication: NECK PAIN
     Route: 048
     Dates: end: 201102
  2. PERCOCET [Suspect]
     Indication: NECK PAIN
     Dosage: EVERY 4-6 HOURS
     Route: 048
     Dates: start: 201011, end: 201102
  3. FLEXERIL [Concomitant]
     Indication: MUSCLE RELAXANT THERAPY
     Route: 048

REACTIONS (1)
  - Neck pain [Unknown]
